FAERS Safety Report 13916609 (Version 2)
Quarter: 2017Q3

REPORT INFORMATION
  Report Type: Spontaneous
  Country: BR (occurrence: BR)
  Receive Date: 20170829
  Receipt Date: 20170829
  Transmission Date: 20171127
  Serious: Yes (Other)
  Sender: FDA-Public Use
  Company Number: PHHY2017BR126096

PATIENT
  Age: 26 Year
  Sex: Female

DRUGS (6)
  1. USTEKINUMAB [Suspect]
     Active Substance: USTEKINUMAB
     Dosage: UNK, EVERY 8 WEEKS
     Route: 065
  2. ETANERCEPT [Suspect]
     Active Substance: ETANERCEPT
     Indication: PSORIASIS
     Route: 065
  3. USTEKINUMAB [Suspect]
     Active Substance: USTEKINUMAB
     Indication: PSORIASIS
     Dosage: 45 MG, UNK
     Route: 065
  4. CICLOSPORIN [Suspect]
     Active Substance: CYCLOSPORINE
     Indication: PSORIASIS
     Dosage: UNK
     Route: 065
     Dates: end: 201608
  5. ADALIMUMAB [Suspect]
     Active Substance: ADALIMUMAB
     Indication: PSORIASIS
     Route: 065
  6. METHOTREXATE. [Suspect]
     Active Substance: METHOTREXATE
     Indication: PSORIASIS
     Route: 058

REACTIONS (12)
  - Vasculitis [Unknown]
  - Maternal exposure during pregnancy [Unknown]
  - Exposure during breast feeding [Unknown]
  - Transaminases increased [Unknown]
  - Lymphadenopathy [Unknown]
  - Inflammation [Unknown]
  - Drug ineffective [Unknown]
  - Disseminated tuberculosis [Unknown]
  - Episcleritis [Unknown]
  - Erythema [Unknown]
  - Panniculitis lobular [Unknown]
  - Oedema peripheral [Unknown]
